FAERS Safety Report 17767306 (Version 5)
Quarter: 2020Q3

REPORT INFORMATION
  Report Type: Report from Study
  Country: JP (occurrence: JP)
  Receive Date: 20200511
  Receipt Date: 20200923
  Transmission Date: 20201102
  Serious: Yes (Hospitalization)
  Sender: FDA-Public Use
  Company Number: JP-CELGENEUS-JPN-20180702555

PATIENT
  Age: 68 Year
  Sex: Male
  Weight: 30.9 kg

DRUGS (41)
  1. NORMAL SALINE [Concomitant]
     Active Substance: SODIUM CHLORIDE
     Dosage: 1000 MILLILITER
     Route: 065
     Dates: start: 20180602, end: 20180602
  2. SOLDEM 3A [Concomitant]
     Active Substance: CARBOHYDRATES\POTASSIUM CHLORIDE\SODIUM CHLORIDE\SODIUM LACTATE
     Indication: NUTRITIONAL SUPPLEMENTATION
     Dosage: 500 MILLILITER
     Route: 065
     Dates: start: 20180526
  3. SOLDEM 3A [Concomitant]
     Active Substance: CARBOHYDRATES\POTASSIUM CHLORIDE\SODIUM CHLORIDE\SODIUM LACTATE
     Dosage: 1000 MILLILITER
     Route: 065
     Dates: start: 20181023, end: 20181025
  4. VIDAZA [Suspect]
     Active Substance: AZACITIDINE
     Dosage: 75 MILLIGRAM/SQ. METER
     Route: 041
     Dates: start: 20190820, end: 20200409
  5. VENETOCLAX. [Suspect]
     Active Substance: VENETOCLAX
     Indication: ACUTE MYELOID LEUKAEMIA
     Dosage: 1 DF
     Route: 048
     Dates: start: 20180531, end: 20180724
  6. MINOCYCLINE HYDROCHLORIDE. [Suspect]
     Active Substance: MINOCYCLINE HYDROCHLORIDE
     Indication: FURUNCLE
     Dosage: 100 MG
     Route: 048
     Dates: start: 20190703
  7. MAGMITT [Concomitant]
     Active Substance: MAGNESIUM OXIDE
     Indication: CONSTIPATION
     Dosage: 83.3333 MILLIGRAM
     Route: 065
     Dates: start: 20180515, end: 20180517
  8. DESPA KOWA [Concomitant]
     Indication: STOMATITIS
     Route: 048
     Dates: start: 20180605
  9. NORMAL SALINE [Concomitant]
     Active Substance: SODIUM CHLORIDE
     Dosage: 1500 MILLILITER
     Route: 065
     Dates: start: 20180531, end: 20180601
  10. VENETOCLAX. [Suspect]
     Active Substance: VENETOCLAX
     Dosage: 1 DF
     Route: 048
     Dates: start: 20180806, end: 20181021
  11. VENETOCLAX. [Suspect]
     Active Substance: VENETOCLAX
     Dosage: 1 DF
     Route: 048
     Dates: start: 20190130, end: 20200409
  12. FLORID [Concomitant]
     Active Substance: MICONAZOLE
     Indication: STOMATITIS
     Dosage: 15 GRAM
     Route: 048
     Dates: start: 20180618
  13. SOLDEM 3A [Concomitant]
     Active Substance: CARBOHYDRATES\POTASSIUM CHLORIDE\SODIUM CHLORIDE\SODIUM LACTATE
     Dosage: 1000 MILLILITER
     Route: 065
     Dates: start: 20200419, end: 20200419
  14. VENETOCLAX. [Suspect]
     Active Substance: VENETOCLAX
     Dosage: 1 DF
     Route: 048
     Dates: start: 20200603
  15. NORMAL SALINE [Concomitant]
     Active Substance: SODIUM CHLORIDE
     Indication: PROPHYLAXIS
     Dosage: 500 MILLILITER
     Route: 065
     Dates: start: 20180530, end: 20180530
  16. METOCLOPRAMIDE. [Concomitant]
     Active Substance: METOCLOPRAMIDE
     Dosage: 5 MILLIGRAM
     Route: 065
     Dates: start: 20190510
  17. SENNOSIDE [Concomitant]
     Active Substance: SENNOSIDES
     Route: 065
     Dates: start: 20191009
  18. VENETOCLAX. [Suspect]
     Active Substance: VENETOCLAX
     Dosage: 1 DF
     Route: 048
     Dates: start: 20200414, end: 20200419
  19. FEBUXOSTAT. [Concomitant]
     Active Substance: FEBUXOSTAT
     Indication: PROPHYLAXIS
     Dosage: 20 MILLIGRAM
     Route: 065
     Dates: start: 20180530, end: 20180612
  20. AZULENE [Concomitant]
     Active Substance: AZULENE
     Indication: STOMATITIS
     Dosage: 4 PERCENT
     Route: 065
     Dates: start: 20180628
  21. FUCIDIN LEO [Concomitant]
     Active Substance: FUSIDATE SODIUM
     Indication: FURUNCLE
     Dosage: 1 GRAM
     Route: 065
     Dates: start: 20190703
  22. BIO?THREE [Concomitant]
     Active Substance: HERBALS
     Indication: PROPHYLAXIS AGAINST DIARRHOEA
     Dosage: 3 DF
     Route: 065
     Dates: start: 20190109
  23. PEGFILGRASTIM [Concomitant]
     Active Substance: PEGFILGRASTIM
     Indication: NEUTROPHIL COUNT DECREASED
     Route: 065
  24. VENETOCLAX. [Suspect]
     Active Substance: VENETOCLAX
     Dosage: 1 DF
     Route: 048
     Dates: start: 20190108, end: 20190114
  25. MAGMITT [Concomitant]
     Active Substance: MAGNESIUM OXIDE
     Dosage: 750 MILLIGRAM
     Route: 065
     Dates: start: 20180518
  26. VENETOCLAX. [Suspect]
     Active Substance: VENETOCLAX
     Dosage: 1 DF
     Route: 048
     Dates: start: 20181030, end: 20181126
  27. VENETOCLAX. [Suspect]
     Active Substance: VENETOCLAX
     Dosage: 1 DF
     Route: 048
     Dates: start: 20181129, end: 20181226
  28. VIDARABINE [Concomitant]
     Active Substance: VIDARABINE
     Indication: ORAL HERPES
     Route: 065
     Dates: start: 20180612
  29. VITAMEDIN [Concomitant]
     Active Substance: CYANOCOBALAMIN\PYRIDOXINE HYDROCHLORIDE\THIAMINE
     Indication: VITAMIN SUPPLEMENTATION
     Route: 065
     Dates: start: 20180524
  30. SOLDEM 3A [Concomitant]
     Active Substance: CARBOHYDRATES\POTASSIUM CHLORIDE\SODIUM CHLORIDE\SODIUM LACTATE
     Dosage: 500 MILLILITER
     Route: 065
     Dates: start: 20181022, end: 20181022
  31. SOLDEM 3A [Concomitant]
     Active Substance: CARBOHYDRATES\POTASSIUM CHLORIDE\SODIUM CHLORIDE\SODIUM LACTATE
     Dosage: 1000 MILLILITER
     Route: 065
     Dates: start: 20200408, end: 20200412
  32. METOCLOPRAMIDE. [Concomitant]
     Active Substance: METOCLOPRAMIDE
     Indication: PROPHYLAXIS OF NAUSEA AND VOMITING
     Dosage: 5 MILLIGRAM
     Route: 065
     Dates: start: 20181006, end: 20181006
  33. BFLUID [Concomitant]
     Active Substance: AMINO ACIDS\DEXTROSE\ELECTROLYTES NOS\VITAMINS
     Indication: NUTRITIONAL SUPPLEMENTATION
     Route: 065
  34. METOCLOPRAMIDE HYDROCHLORIDE. [Concomitant]
     Active Substance: METOCLOPRAMIDE HYDROCHLORIDE
     Indication: PRODUCT USED FOR UNKNOWN INDICATION
     Route: 041
  35. VIDAZA [Suspect]
     Active Substance: AZACITIDINE
     Indication: ACUTE MYELOID LEUKAEMIA
     Dosage: 75 MILLIGRAM/SQ. METER
     Route: 041
     Dates: start: 20180531, end: 20190709
  36. VIDAZA [Suspect]
     Active Substance: AZACITIDINE
     Dosage: 98 MILLIGRAM/SQ. METER
     Route: 041
  37. FAMOTIDINE. [Concomitant]
     Active Substance: FAMOTIDINE
     Indication: GASTRITIS PROPHYLAXIS
     Dosage: 40 MILLIGRAM
     Route: 065
     Dates: start: 20180524
  38. NORMAL SALINE [Concomitant]
     Active Substance: SODIUM CHLORIDE
     Dosage: 500 MILLILITER
     Route: 065
     Dates: start: 20180603, end: 20180604
  39. SODIUM GUALENATE HYDRATE [Concomitant]
     Active Substance: SODIUM GUALENATE MONOHYDRATE
     Indication: PRODUCT USED FOR UNKNOWN INDICATION
     Route: 065
     Dates: start: 20180628
  40. SENNOSIDE [Concomitant]
     Active Substance: SENNOSIDES
     Indication: CONSTIPATION
     Route: 065
     Dates: start: 20180609, end: 20180609
  41. HEPAFLUSH [Concomitant]
     Active Substance: HEPARIN SODIUM
     Indication: PRODUCT USED FOR UNKNOWN INDICATION
     Route: 065
     Dates: start: 20200403

REACTIONS (9)
  - Nausea [Recovered/Resolved]
  - Febrile neutropenia [Recovered/Resolved]
  - Febrile neutropenia [Recovered/Resolved]
  - Febrile neutropenia [Recovered/Resolved]
  - Epistaxis [Recovered/Resolved]
  - Febrile neutropenia [Recovered/Resolved]
  - Platelet count decreased [Recovered/Resolved]
  - Febrile neutropenia [Recovered/Resolved]
  - Febrile neutropenia [Recovered/Resolved]

NARRATIVE: CASE EVENT DATE: 20180621
